FAERS Safety Report 23841175 (Version 1)
Quarter: 2024Q2

REPORT INFORMATION
  Report Type: Spontaneous
  Country: KR (occurrence: KR)
  Receive Date: 20240510
  Receipt Date: 20240510
  Transmission Date: 20240716
  Serious: Yes (Hospitalization)
  Sender: FDA-Public Use
  Company Number: KR-ORGANON-O2405KOR000495

PATIENT
  Age: 87 Year
  Sex: Male
  Weight: 75 kg

DRUGS (8)
  1. PROSCAR [Suspect]
     Active Substance: FINASTERIDE
     Dosage: UNK
  2. NEBIVOLOL HYDROCHLORIDE [Suspect]
     Active Substance: NEBIVOLOL HYDROCHLORIDE
     Dosage: UNK
  3. TORSEMIDE [Suspect]
     Active Substance: TORSEMIDE
     Dosage: UNK
  4. AZOSEMIDE [Suspect]
     Active Substance: AZOSEMIDE
     Dosage: UNK
  5. EDOXABAN TOSYLATE [Suspect]
     Active Substance: EDOXABAN TOSYLATE
     Dosage: UNK
  6. CLORPRENALINE HYDROCHLORIDE [Suspect]
     Active Substance: CLORPRENALINE HYDROCHLORIDE
     Dosage: UNK
  7. LASIX [Suspect]
     Active Substance: FUROSEMIDE
     Dosage: UNK
  8. HARNAL [Suspect]
     Active Substance: TAMSULOSIN HYDROCHLORIDE
     Dosage: UNK

REACTIONS (3)
  - Cardiac failure [Recovered/Resolved]
  - Urinary retention [Unknown]
  - Localised oedema [Unknown]

NARRATIVE: CASE EVENT DATE: 20240329
